FAERS Safety Report 24270729 (Version 1)
Quarter: 2024Q3

REPORT INFORMATION
  Report Type: Spontaneous
  Country: US (occurrence: US)
  Receive Date: 20240831
  Receipt Date: 20240831
  Transmission Date: 20241017
  Serious: No
  Sender: LEADING PHARMA
  Company Number: US-LEADINGPHARMA-US-2024LEASPO00364

PATIENT
  Age: 29 Year
  Sex: Male

DRUGS (1)
  1. FOLIC ACID [Suspect]
     Active Substance: FOLIC ACID
     Indication: Anaemia
     Route: 048
     Dates: start: 20240801, end: 20240817

REACTIONS (5)
  - Discomfort [Unknown]
  - Feeling abnormal [Unknown]
  - Paraesthesia [Unknown]
  - Lip swelling [Unknown]
  - Hypersensitivity [Unknown]

NARRATIVE: CASE EVENT DATE: 20240801
